FAERS Safety Report 18152230 (Version 2)
Quarter: 2023Q4

REPORT INFORMATION
  Report Type: Spontaneous
  Country: US (occurrence: NL)
  Receive Date: 20200814
  Receipt Date: 20231124
  Transmission Date: 20240110
  Serious: Yes (Life-Threatening, Hospitalization)
  Sender: FDA-Public Use
  Company Number: AN-JNJFOC-20200807308

PATIENT
  Age: 37 Year
  Sex: Female

DRUGS (10)
  1. CANAGLIFLOZIN [Suspect]
     Active Substance: CANAGLIFLOZIN
     Indication: Type 2 diabetes mellitus
     Route: 048
  2. METFORMIN HYDROCHLORIDE\SITAGLIPTIN PHOSPHATE [Concomitant]
     Active Substance: METFORMIN HYDROCHLORIDE\SITAGLIPTIN PHOSPHATE
     Dosage: 501000 MG
  3. CETIRIZINE [Concomitant]
     Active Substance: CETIRIZINE HYDROCHLORIDE
  4. CITALOPRAM [Concomitant]
     Active Substance: CITALOPRAM HYDROBROMIDE
  5. LEVOTHYROXINE [Concomitant]
     Active Substance: LEVOTHYROXINE
  6. LISINOPRIL [Concomitant]
     Active Substance: LISINOPRIL
  7. PANTOPRAZOLE [Concomitant]
     Active Substance: PANTOPRAZOLE
  8. PRAVASTATIN [Concomitant]
     Active Substance: PRAVASTATIN
  9. TRAZODONE [Concomitant]
     Active Substance: TRAZODONE HYDROCHLORIDE
  10. VALACYCLOVIR HYDROCHLORIDE [Concomitant]
     Active Substance: VALACYCLOVIR HYDROCHLORIDE

REACTIONS (2)
  - Fournier^s gangrene [Recovering/Resolving]
  - Diabetic ketoacidosis [Recovering/Resolving]
